FAERS Safety Report 7923303-2 (Version None)
Quarter: 2011Q4

REPORT INFORMATION
  Report Type: 
  Country: None (occurrence: None)
  Receive Date: 20111117
  Receipt Date: 20110201
  Transmission Date: 20120403
  Serious: Yes (Other)
  Sender: FDA-Public Use
  Company Number: US-AMGEN-USASP2011006020

PATIENT
  Age: 52 Year
  Sex: Female

DRUGS (1)
  1. ENBREL [Suspect]
     Indication: RHEUMATOID ARTHRITIS
     Dates: start: 20061001

REACTIONS (5)
  - PAIN [None]
  - HEPATITIS C [None]
  - ASTHENIA [None]
  - VISUAL IMPAIRMENT [None]
  - FATIGUE [None]
